FAERS Safety Report 13496243 (Version 2)
Quarter: 2017Q2

REPORT INFORMATION
  Report Type: Spontaneous
  Country: US (occurrence: US)
  Receive Date: 20170428
  Receipt Date: 20170428
  Transmission Date: 20170830
  Serious: No
  Sender: FDA-Public Use
  Company Number: US-JAZZ-2017-US-003626

PATIENT
  Sex: Female

DRUGS (31)
  1. XYREM [Suspect]
     Active Substance: SODIUM OXYBATE
     Indication: CATAPLEXY
     Dosage: DOSE ADJUSTMENT
     Route: 048
     Dates: start: 201004, end: 201503
  2. AMITRIPTYLINE HCL [Concomitant]
     Active Substance: AMITRIPTYLINE
  3. ADDERALL [Concomitant]
     Active Substance: AMPHETAMINE ASPARTATE\AMPHETAMINE SULFATE\DEXTROAMPHETAMINE SACCHARATE\DEXTROAMPHETAMINE SULFATE
  4. NAPROXEN. [Concomitant]
     Active Substance: NAPROXEN
  5. TRAZODONE [Concomitant]
     Active Substance: TRAZODONE HYDROCHLORIDE
  6. CIPRO [Concomitant]
     Active Substance: CIPROFLOXACIN HYDROCHLORIDE
  7. PHENAZOPYRIDINE. [Concomitant]
     Active Substance: PHENAZOPYRIDINE
  8. RITALIN [Concomitant]
     Active Substance: METHYLPHENIDATE HYDROCHLORIDE
  9. HALCION [Concomitant]
     Active Substance: TRIAZOLAM
  10. ESTROGEN [Concomitant]
     Active Substance: ESTROGENS
  11. THYROLAR                           /00068002/ [Concomitant]
  12. XYREM [Suspect]
     Active Substance: SODIUM OXYBATE
     Dosage: 2.5 G, BID
     Route: 048
     Dates: start: 20170314
  13. DICYCLOMINE                        /00068601/ [Concomitant]
     Active Substance: DICYCLOMINE HYDROCHLORIDE
  14. ELMIRON [Concomitant]
     Active Substance: PENTOSAN POLYSULFATE SODIUM
  15. TRAMADOL. [Concomitant]
     Active Substance: TRAMADOL
  16. VERAMYST [Concomitant]
     Active Substance: FLUTICASONE FUROATE
  17. XYREM [Suspect]
     Active Substance: SODIUM OXYBATE
     Indication: NARCOLEPSY
     Dosage: 2.25G, BID
     Route: 048
     Dates: start: 201002, end: 201004
  18. DEXEDRINE [Concomitant]
     Active Substance: DEXTROAMPHETAMINE SULFATE
  19. EPINEPHRINE. [Concomitant]
     Active Substance: EPINEPHRINE
  20. ONDANSETRON HCL [Concomitant]
     Active Substance: ONDANSETRON HYDROCHLORIDE
  21. PROPRANOLOL [Concomitant]
     Active Substance: PROPRANOLOL HYDROCHLORIDE
  22. SINGULAIR [Concomitant]
     Active Substance: MONTELUKAST SODIUM
  23. XYREM [Suspect]
     Active Substance: SODIUM OXYBATE
     Dosage: 2G, BID
     Route: 048
     Dates: start: 201703, end: 20170313
  24. LUPRON DEPOT [Concomitant]
     Active Substance: LEUPROLIDE ACETATE
  25. ASTEPRO [Concomitant]
     Active Substance: AZELASTINE HYDROCHLORIDE
  26. BACTRIM [Concomitant]
     Active Substance: SULFAMETHOXAZOLE\TRIMETHOPRIM
  27. LORAZEPAM. [Concomitant]
     Active Substance: LORAZEPAM
  28. PROVIGIL [Concomitant]
     Active Substance: MODAFINIL
  29. FLUCONAZOLE. [Concomitant]
     Active Substance: FLUCONAZOLE
  30. PERCOCET [Concomitant]
     Active Substance: ACETAMINOPHEN\OXYCODONE HYDROCHLORIDE
  31. VALACYCLOVIR HCL [Concomitant]
     Active Substance: VALACYCLOVIR HYDROCHLORIDE

REACTIONS (9)
  - Myalgia [Unknown]
  - Abnormal behaviour [Unknown]
  - Motion sickness [Unknown]
  - Coordination abnormal [Unknown]
  - Dizziness [Unknown]
  - Hyperhidrosis [Unknown]
  - Feeling drunk [Not Recovered/Not Resolved]
  - Nausea [Unknown]
  - Headache [Unknown]

NARRATIVE: CASE EVENT DATE: 201703
